FAERS Safety Report 23355176 (Version 2)
Quarter: 2024Q1

REPORT INFORMATION
  Report Type: Report from Study
  Country: US (occurrence: US)
  Receive Date: 20240102
  Receipt Date: 20240104
  Transmission Date: 20240410
  Serious: Yes (Other)
  Sender: FDA-Public Use
  Company Number: US-ABBVIE-5561149

PATIENT
  Age: 73 Year
  Sex: Male
  Weight: 75.296 kg

DRUGS (2)
  1. SKYRIZI [Suspect]
     Active Substance: RISANKIZUMAB-RZAA
     Indication: Crohn^s disease
     Route: 058
     Dates: start: 20231229
  2. SKYRIZI [Suspect]
     Active Substance: RISANKIZUMAB-RZAA
     Indication: Crohn^s disease
     Route: 058
     Dates: start: 20230904, end: 202311

REACTIONS (6)
  - Intervertebral disc compression [Not Recovered/Not Resolved]
  - Chest pain [Not Recovered/Not Resolved]
  - Bone disorder [Unknown]
  - Spinal disorder [Unknown]
  - Weight decreased [Unknown]
  - Procedural failure [Unknown]

NARRATIVE: CASE EVENT DATE: 20231024
